FAERS Safety Report 9303193 (Version 2)
Quarter: 2013Q2

REPORT INFORMATION
  Report Type: Spontaneous
  Country: ES (occurrence: ES)
  Receive Date: 20130522
  Receipt Date: 20130522
  Transmission Date: 20140414
  Serious: Yes (Other)
  Sender: FDA-Public Use
  Company Number: ES-JNJFOC-20130506068

PATIENT
  Age: 62 Year
  Sex: Male

DRUGS (1)
  1. LISTERINE (UNSPECIFIED) [Suspect]
     Indication: DENTAL DISORDER PROPHYLAXIS
     Route: 002
     Dates: end: 201205

REACTIONS (2)
  - Migraine with aura [Recovered/Resolved]
  - Blindness [Recovered/Resolved]
